FAERS Safety Report 8170175-X (Version None)
Quarter: 2012Q1

REPORT INFORMATION
  Report Type: 
  Country: None (occurrence: None)
  Receive Date: 20120104
  Receipt Date: 20111128
  Transmission Date: 20120608
  Serious: No
  Sender: FDA-Public Use
  Company Number: 2011HGS-002866

PATIENT
  Age: 71 Year
  Sex: Female
  Weight: 53.978 kg

DRUGS (8)
  1. PREDNISONE [Concomitant]
  2. PLAQUINIL (HYDROXYCHLOROQUINE SULFATE) (HYDROXYCHLOROQUINE SULFATE) [Concomitant]
  3. LUNESTA (ESZOPICLONE) (ESZOPICLONE) [Concomitant]
  4. BENLYSTA [Suspect]
     Indication: SYSTEMIC LUPUS ERYTHEMATOSUS
     Dosage: 1 IN 28 D, INTRAVENOUS DRIP
     Route: 041
     Dates: start: 20110801
  5. CREON (PANCRELIPASE) (PANCRELIPASE) [Concomitant]
  6. SIMVASTATIN [Concomitant]
  7. VERAPAMIL [Concomitant]
  8. LANSOPRAZOLE [Concomitant]

REACTIONS (3)
  - JOINT STIFFNESS [None]
  - HEADACHE [None]
  - MUSCULOSKELETAL DISCOMFORT [None]
